FAERS Safety Report 6549885-3 (Version None)
Quarter: 2010Q1

REPORT INFORMATION
  Report Type: 
  Country: None (occurrence: None)
  Receive Date: 20100125
  Receipt Date: 20100115
  Transmission Date: 20100710
  Serious: Yes (Other)
  Sender: FDA-Public Use
  Company Number: US-JNJCH-2009026866

PATIENT
  Sex: Female
  Weight: 57.2 kg

DRUGS (2)
  1. BENADRYL [Suspect]
     Indication: HYPERSENSITIVITY
     Dosage: TEXT:2 TABLETS EVERY 4-6 HOURS
     Route: 048
     Dates: start: 20090202, end: 20090701
  2. COZAAR [Concomitant]
     Indication: HYPERTENSION
     Dosage: TEXT:50 MG 1X A DAY
     Route: 065

REACTIONS (4)
  - DRY MOUTH [None]
  - TOOTH DISCOLOURATION [None]
  - TOOTH EXTRACTION [None]
  - TOOTH LOSS [None]
